FAERS Safety Report 15535945 (Version 1)
Quarter: 2018Q4

REPORT INFORMATION
  Report Type: Report from Study
  Country: FR (occurrence: FR)
  Receive Date: 20181022
  Receipt Date: 20181022
  Transmission Date: 20190205
  Serious: Yes (Other)
  Sender: FDA-Public Use
  Company Number: FR-ACCORD-073495

PATIENT
  Age: 64 Year
  Sex: Male

DRUGS (5)
  1. PACLITAXEL/PACLITAXEL LIPOSOME [Suspect]
     Active Substance: PACLITAXEL
     Indication: PROSTATE CANCER
     Dosage: DAYS 1 AND 15
     Route: 042
     Dates: start: 201204
  2. FOLINIC ACID [Suspect]
     Active Substance: LEUCOVORIN
     Indication: PROSTATE CANCER
     Dates: start: 201204
  3. FLUOROURACIL. [Suspect]
     Active Substance: FLUOROURACIL
     Indication: PROSTATE CANCER
     Dates: start: 201204
  4. OXALIPLATIN. [Suspect]
     Active Substance: OXALIPLATIN
     Indication: PROSTATE CANCER
     Dates: start: 201204
  5. RAMUCIRUMAB [Suspect]
     Active Substance: RAMUCIRUMAB
     Indication: PROSTATE CANCER
     Dosage: DAYS 1, 8, AND 15

REACTIONS (7)
  - Neuropathy peripheral [Recovering/Resolving]
  - Peripheral sensory neuropathy [Unknown]
  - Proteinuria [Recovered/Resolved]
  - Hypertension [Recovered/Resolved]
  - Peripheral motor neuropathy [Unknown]
  - Hepatic steatosis [Unknown]
  - Off label use [Unknown]
